FAERS Safety Report 19115732 (Version 1)
Quarter: 2021Q2

REPORT INFORMATION
  Report Type: Spontaneous
  Country: JP (occurrence: JP)
  Receive Date: 20210409
  Receipt Date: 20210409
  Transmission Date: 20210717
  Serious: Yes (Other)
  Sender: FDA-Public Use
  Company Number: JP-PFIZER INC-2021352994

PATIENT
  Sex: Female

DRUGS (1)
  1. PREGABALIN OD 75MG PFIZER [Suspect]
     Active Substance: PREGABALIN
     Indication: HYPOAESTHESIA
     Dosage: 75 MG, 4X/DAY
     Route: 048
     Dates: start: 20210322

REACTIONS (3)
  - Drug ineffective for unapproved indication [Unknown]
  - Off label use [Unknown]
  - Foreign body in throat [Unknown]

NARRATIVE: CASE EVENT DATE: 202103
